FAERS Safety Report 8777195 (Version 1)
Quarter: 2012Q4

REPORT INFORMATION
  Report Type: 
  Country: NO (occurrence: NO)
  Receive Date: 20120911
  Receipt Date: 20120911
  Transmission Date: 20130627
  Serious: Yes (Other)
  Sender: FDA-Public Use
  Company Number: NO-BAUSCH-BL-2012-000796

PATIENT
  Age: 4 Week
  Sex: Male

DRUGS (2)
  1. CYCLOPENTOLATE [Suspect]
     Indication: PRODUCT USED FOR UNKNOWN INDICATION
  2. PHENYLEPHRINE [Suspect]
     Indication: PRODUCT USED FOR UNKNOWN INDICATION

REACTIONS (3)
  - Apnoeic attack [Recovered/Resolved]
  - Decreased appetite [Recovered/Resolved]
  - Fatigue [Recovered/Resolved]
